FAERS Safety Report 5916517-4 (Version None)
Quarter: 2008Q4

REPORT INFORMATION
  Report Type: 
  Country: None (occurrence: None)
  Receive Date: 20081013
  Receipt Date: 20081003
  Transmission Date: 20090506
  Serious: Yes (Hospitalization)
  Sender: FDA-Public Use
  Company Number: A0751469A

PATIENT
  Age: 38 Year
  Sex: Female
  Weight: 94.5 kg

DRUGS (1)
  1. AVANDIA [Suspect]
     Route: 048

REACTIONS (2)
  - EMBOLIC STROKE [None]
  - MYOCARDIAL INFARCTION [None]
